FAERS Safety Report 10051530 (Version 1)
Quarter: 2014Q1

REPORT INFORMATION
  Report Type: Spontaneous
  Country: US (occurrence: None)
  Receive Date: 20140331
  Receipt Date: 20140331
  Transmission Date: 20141002
  Serious: Yes (Death)
  Sender: FDA-Public Use
  Company Number: ADR-2014-00501

PATIENT
  Sex: Male

DRUGS (1)
  1. BACLOFEN INTRATHECAL [Suspect]
     Indication: CEREBRAL PALSY

REACTIONS (2)
  - Device connection issue [None]
  - Device damage [None]
